FAERS Safety Report 9651069 (Version 2)
Quarter: 2014Q1

REPORT INFORMATION
  Report Type: Spontaneous
  Country: US (occurrence: US)
  Receive Date: 20131029
  Receipt Date: 20140121
  Transmission Date: 20141002
  Serious: No
  Sender: FDA-Public Use
  Company Number: US-PFIZER INC-2013305881

PATIENT
  Age: 77 Year
  Sex: Male

DRUGS (6)
  1. SUTENT [Suspect]
     Indication: METASTATIC RENAL CELL CARCINOMA
     Dosage: 50 MG, 1X/DAY (28 DAYS ON AND 14 DAYS OFF EVERY 6 WEEKS)
     Route: 048
     Dates: start: 20130123
  2. LOSARTAN [Concomitant]
     Dosage: UNK
  3. CARVEDILOL [Concomitant]
     Indication: HYPERTENSION
     Dosage: 6.25 MG, 2X/DAY
  4. VITAMIN D [Concomitant]
     Dosage: UNK
  5. VITAMIN C [Concomitant]
     Dosage: UNK
  6. WARFARIN [Concomitant]
     Indication: PULMONARY EMBOLISM
     Dosage: UNK

REACTIONS (3)
  - Skin lesion [Unknown]
  - Blister [Unknown]
  - Hypothyroidism [Unknown]
